FAERS Safety Report 4376393-0 (Version None)
Quarter: 2004Q2

REPORT INFORMATION
  Report Type: 
  Country: None (occurrence: None)
  Receive Date: 20040610
  Receipt Date: 20040610
  Transmission Date: 20050107
  Serious: Yes (Disabling)
  Sender: FDA-Public Use
  Company Number: None

PATIENT
  Age: 27 Year
  Sex: Male
  Weight: 124.7392 kg

DRUGS (2)
  1. KEFZOL [Suspect]
     Indication: SINUSITIS
     Dosage: IM INJECT
     Route: 030
     Dates: start: 20020921, end: 20021231
  2. TEQUIN [Suspect]
     Indication: SINUSITIS
     Dosage: 1 TABLET 14 DAYS

REACTIONS (14)
  - ABASIA [None]
  - ACTIVITIES OF DAILY LIVING IMPAIRED [None]
  - COUGH [None]
  - DYSSTASIA [None]
  - ERYTHEMA [None]
  - FALL [None]
  - HEADACHE [None]
  - INJECTION SITE PAIN [None]
  - LACRIMATION INCREASED [None]
  - PAIN [None]
  - PYREXIA [None]
  - RASH [None]
  - SKIN DISORDER [None]
  - WEIGHT DECREASED [None]
